FAERS Safety Report 5919669-5 (Version None)
Quarter: 2008Q3

REPORT INFORMATION
  Report Type: 
  Country: None (occurrence: None)
  Receive Date: 20080909
  Receipt Date: 20080530
  Transmission Date: 20090109
  Serious: Yes (Hospitalization)
  Sender: FDA-Public Use
  Company Number: 163-20785-08051761

PATIENT
  Age: 70 Year
  Sex: Male
  Weight: 80.5 kg

DRUGS (20)
  1. THALOMID [Suspect]
     Indication: MULTIPLE MYELOMA
     Dosage: 200 MG, DAILY, ORAL ; 50 MG, DAILY, ORAL
     Route: 048
     Dates: end: 20080524
  2. THALOMID [Suspect]
     Indication: MULTIPLE MYELOMA
     Dosage: 200 MG, DAILY, ORAL ; 50 MG, DAILY, ORAL
     Route: 048
     Dates: start: 20050115
  3. DEXAMETHASONE TAB [Suspect]
     Indication: MULTIPLE MYELOMA
     Dosage: 40 MG ; 20 MG
     Dates: end: 20080501
  4. DEXAMETHASONE TAB [Suspect]
     Indication: MULTIPLE MYELOMA
     Dosage: 40 MG ; 20 MG
     Dates: start: 20050115
  5. ACYCLOVIR (ACICLOVIR) (TABLETS) [Concomitant]
  6. MAGNESIUM (MAGNESIUM) [Concomitant]
  7. LORAZEPAM (LORAZEPAM) (TABLETS) [Concomitant]
  8. MYCELEX [Concomitant]
  9. FOLIC ACID [Concomitant]
  10. RANITIDINE HCL (RANITIDINE HYDROCHLORIDE) (CAPSULES) [Concomitant]
  11. COUMADIN [Concomitant]
  12. BUSPIRONE HCL (BUSPIRONE HYDROCHLROIDE) (TABLETS) [Concomitant]
  13. DAPSONE [Concomitant]
  14. CALCIUM CARBONATE- VITAMIN D (TABLETS) [Concomitant]
  15. B COMPLEX VITAMINS PLUS (VITAMIN B-COMPLEX) (TABLETS) [Concomitant]
  16. VICODIN [Concomitant]
  17. OXYCODONE HCL (OXYCODONE HYDROCHLORIDE) (TABLETS) [Concomitant]
  18. ALBUTEROL AERS (SALBUTAMOL SULFATE) [Concomitant]
  19. CIPRO (CIPROFLOXACIN) (TABLETS) [Concomitant]
  20. COMBIVENT AREO (COMBIVENT) [Concomitant]

REACTIONS (1)
  - ACUTE SINUSITIS [None]
